FAERS Safety Report 9852813 (Version 3)
Quarter: 2014Q3

REPORT INFORMATION
  Report Type: Spontaneous
  Country: US (occurrence: US)
  Receive Date: 20140129
  Receipt Date: 20140922
  Transmission Date: 20150326
  Serious: Yes (Hospitalization, Other)
  Sender: FDA-Public Use
  Company Number: US-009507513-1401USA011481

PATIENT
  Sex: Female

DRUGS (1)
  1. NUVARING [Suspect]
     Active Substance: ETHINYL ESTRADIOL\ETONOGESTREL
     Indication: MENOMETRORRHAGIA
     Dosage: UNK
     Route: 067
     Dates: end: 20130216

REACTIONS (17)
  - Pain [Unknown]
  - Sinusitis [Unknown]
  - Fall [Unknown]
  - Adenomyosis [Unknown]
  - Pulmonary embolism [Unknown]
  - Alcoholism [Unknown]
  - Hysterectomy [Unknown]
  - Biopsy [Unknown]
  - Off label use [Unknown]
  - Cholelithiasis [Unknown]
  - Vena cava filter insertion [Unknown]
  - Nasal septal operation [Unknown]
  - Pelvic mass [Unknown]
  - Bronchitis [Unknown]
  - Sinus operation [Unknown]
  - Salpingectomy [Unknown]
  - Ovarian cyst [Unknown]

NARRATIVE: CASE EVENT DATE: 201302
